FAERS Safety Report 7685804-4 (Version None)
Quarter: 2011Q3

REPORT INFORMATION
  Report Type: 
  Country: None (occurrence: None)
  Receive Date: 20110815
  Receipt Date: 20110815
  Transmission Date: 20111222
  Serious: Yes (Hospitalization)
  Sender: FDA-Public Use
  Company Number: None

PATIENT
  Age: 38 Year
  Sex: Female
  Weight: 58.967 kg

DRUGS (1)
  1. FOLLISTIM [Suspect]
     Indication: INFERTILITY
     Route: 030

REACTIONS (5)
  - URTICARIA [None]
  - VOMITING [None]
  - SHOCK [None]
  - CHILLS [None]
  - HYPERSENSITIVITY [None]
